FAERS Safety Report 18035053 (Version 2)
Quarter: 2020Q3

REPORT INFORMATION
  Report Type: Spontaneous
  Country: JP (occurrence: JP)
  Receive Date: 20200717
  Receipt Date: 20200831
  Transmission Date: 20201103
  Serious: Yes (Other)
  Sender: FDA-Public Use
  Company Number: JP-AMGEN-JPNSP2020113311

PATIENT
  Age: 66 Year
  Sex: Male
  Weight: 64.5 kg

DRUGS (13)
  1. OXAROL [Concomitant]
     Active Substance: MAXACALCITOL
     Dosage: 5 UG, Q84H
     Route: 065
     Dates: end: 20190509
  2. OXAROL [Concomitant]
     Active Substance: MAXACALCITOL
     Dosage: 5 UG, Q84H
     Route: 065
     Dates: start: 20190905, end: 20191015
  3. OXAROL [Concomitant]
     Active Substance: MAXACALCITOL
     Dosage: 5 UG, Q56H
     Route: 065
     Dates: start: 20191017
  4. PARSABIV [Suspect]
     Active Substance: ETELCALCETIDE HYDROCHLORIDE
     Dosage: 2.5 MILLIGRAM, Q56H
     Route: 010
     Dates: start: 20190704
  5. PRECIPITATED CALCIUM CARBONATE [Concomitant]
     Active Substance: CALCIUM CARBONATE
     Dosage: 2000 MG, EVERYDAY
     Route: 065
     Dates: end: 20190909
  6. OXAROL [Concomitant]
     Active Substance: MAXACALCITOL
     Dosage: 5 UG, Q56H
     Route: 065
     Dates: start: 20190511, end: 20190903
  7. RIONA [Concomitant]
     Active Substance: FERRIC CITRATE ANHYDROUS
     Dosage: 1000 MG, EVERYDAY
     Route: 048
     Dates: start: 20190910
  8. MIRCERA [Concomitant]
     Active Substance: METHOXY POLYETHYLENE GLYCOL-EPOETIN BETA
     Dosage: 50 UG, Q4W
     Route: 065
     Dates: start: 20200516
  9. PARSABIV [Suspect]
     Active Substance: ETELCALCETIDE HYDROCHLORIDE
     Indication: HYPERPARATHYROIDISM SECONDARY
     Dosage: 5 MILLIGRAM, Q56H
     Route: 010
     Dates: start: 20190511, end: 20190702
  10. MIRCERA [Concomitant]
     Active Substance: METHOXY POLYETHYLENE GLYCOL-EPOETIN BETA
     Dosage: 50 UG, Q4W
     Route: 065
     Dates: start: 20191102, end: 20200206
  11. NESP [Concomitant]
     Active Substance: DARBEPOETIN ALFA
     Dosage: 5 UG, QW
     Route: 065
     Dates: start: 20191019, end: 20191031
  12. MIRCERA [Concomitant]
     Active Substance: METHOXY POLYETHYLENE GLYCOL-EPOETIN BETA
     Dosage: 100 UG, Q4W
     Route: 065
     Dates: start: 20200208, end: 20200514
  13. MIRCERA [Concomitant]
     Active Substance: METHOXY POLYETHYLENE GLYCOL-EPOETIN BETA
     Dosage: 50 UG, Q4W
     Route: 065
     Dates: end: 20191010

REACTIONS (2)
  - Organising pneumonia [Recovered/Resolved]
  - Pneumonia bacterial [Recovered/Resolved]

NARRATIVE: CASE EVENT DATE: 20200104
